FAERS Safety Report 7991594-8 (Version None)
Quarter: 2011Q4

REPORT INFORMATION
  Report Type: 
  Country: None (occurrence: None)
  Receive Date: 20111219
  Receipt Date: 20110920
  Transmission Date: 20120403
  Serious: No
  Sender: FDA-Public Use
  Company Number: US-ALLERGAN-1112491US

PATIENT
  Sex: Female

DRUGS (2)
  1. SYSTANE [Concomitant]
  2. LUMIGAN [Suspect]
     Indication: INTRAOCULAR PRESSURE INCREASED
     Dosage: 2 GTT, QHS
     Route: 047

REACTIONS (5)
  - EYE IRRITATION [None]
  - DIPLOPIA [None]
  - HALO VISION [None]
  - DRY EYE [None]
  - EYE PAIN [None]
